FAERS Safety Report 4471490-3 (Version None)
Quarter: 2004Q4

REPORT INFORMATION
  Report Type: 
  Country: None (occurrence: None)
  Receive Date: 20041006
  Receipt Date: 20040922
  Transmission Date: 20050328
  Serious: Yes (Hospitalization)
  Sender: FDA-Public Use
  Company Number: 2004-BP-08528BP (0)

PATIENT
  Age: 70 Year
  Sex: Female

DRUGS (2)
  1. SPIRIVA [Suspect]
     Indication: CHRONIC OBSTRUCTIVE AIRWAYS DISEASE
     Dosage: 18 MCG ( 18 MCG )  , IH
     Route: 055
     Dates: start: 20040801
  2. SPIRIVA [Suspect]

REACTIONS (3)
  - IMPLANTABLE DEFIBRILLATOR INSERTION [None]
  - STENT PLACEMENT [None]
  - SYNCOPE [None]
